FAERS Safety Report 9598935 (Version 1)
Quarter: 2013Q4

REPORT INFORMATION
  Report Type: Spontaneous
  Country: US (occurrence: US)
  Receive Date: 20131004
  Receipt Date: 20131004
  Transmission Date: 20140711
  Serious: No
  Sender: FDA-Public Use
  Company Number: US-AMGEN-USASP2013026488

PATIENT
  Age: 45 Year
  Sex: Female
  Weight: 73.3 kg

DRUGS (7)
  1. ENBREL [Suspect]
     Indication: PRODUCT USED FOR UNKNOWN INDICATION
     Dosage: UNK
  2. ZOLOFT [Concomitant]
     Dosage: UNK
  3. METOPROLOL [Concomitant]
     Dosage: UNK
  4. VITAMIN D                          /00107901/ [Concomitant]
     Dosage: UNK
  5. VESICARE [Concomitant]
     Dosage: UNK
  6. VITAMIN B [Concomitant]
     Dosage: UNK
  7. ESTROVEN [Concomitant]
     Dosage: UNK

REACTIONS (3)
  - Psoriasis [Unknown]
  - Injection site reaction [Unknown]
  - Injection site swelling [Unknown]
